FAERS Safety Report 5739166-X (Version None)
Quarter: 2008Q2

REPORT INFORMATION
  Report Type: 
  Country: None (occurrence: None)
  Receive Date: 20080515
  Receipt Date: 20080506
  Transmission Date: 20081010
  Serious: Yes (Other)
  Sender: FDA-Public Use
  Company Number: B0519232A

PATIENT
  Age: 92 Year
  Sex: Female

DRUGS (3)
  1. AUGMENTIN '125' [Suspect]
     Indication: DRUG USE FOR UNKNOWN INDICATION
     Dosage: 1G THREE TIMES PER DAY
     Route: 048
     Dates: start: 20080314, end: 20080315
  2. PYOSTACINE [Suspect]
     Indication: DRUG USE FOR UNKNOWN INDICATION
     Dosage: 500MG TWICE PER DAY
     Route: 048
     Dates: start: 20080312, end: 20080314
  3. ZITHROMAX [Concomitant]
     Indication: DRUG USE FOR UNKNOWN INDICATION
     Route: 065
     Dates: start: 20080315, end: 20080315

REACTIONS (6)
  - ACUTE GENERALISED EXANTHEMATOUS PUSTULOSIS [None]
  - BLISTER [None]
  - ERYTHEMA [None]
  - RASH [None]
  - RASH PUSTULAR [None]
  - SKIN EXFOLIATION [None]
